FAERS Safety Report 9778358 (Version 1)
Quarter: 2013Q4

REPORT INFORMATION
  Report Type: Spontaneous
  Country: CA (occurrence: CA)
  Receive Date: 20131223
  Receipt Date: 20131223
  Transmission Date: 20140711
  Serious: Yes (Hospitalization)
  Sender: FDA-Public Use
  Company Number: CA-PFIZER INC-2013363956

PATIENT
  Age: 60 Year
  Sex: Male

DRUGS (2)
  1. PHENYTOIN [Suspect]
     Indication: EPILEPSY
     Dosage: 200 MG IN THE MORNING, 250 MG AT BEDTIME
  2. CLOBAZAM [Concomitant]
     Indication: EPILEPSY
     Dosage: 10 MG, 2X/DAY

REACTIONS (3)
  - Anticonvulsant drug level above therapeutic [Recovered/Resolved]
  - Nystagmus [Unknown]
  - Ataxia [Unknown]
